FAERS Safety Report 9165398 (Version 1)
Quarter: 2013Q1

REPORT INFORMATION
  Report Type: Spontaneous
  Country: IT (occurrence: None)
  Receive Date: 20130301
  Receipt Date: 20130301
  Transmission Date: 20140127
  Serious: Yes (Other)
  Sender: FDA-Public Use
  Company Number: 2013-IT-0013

PATIENT
  Sex: Male

DRUGS (1)
  1. FENTANYL (UNKNOWN) (FENTAYL (UNKNOWN)));FORMULATION UNKNOWN [Suspect]
     Indication: PRODUCT USED FOR UNKNOWN INDICATION

REACTIONS (4)
  - Hiccups [None]
  - Malaise [None]
  - Cold sweat [None]
  - Vomiting [None]
